FAERS Safety Report 16007493 (Version 1)
Quarter: 2019Q1

REPORT INFORMATION
  Report Type: Spontaneous
  Country: US (occurrence: US)
  Receive Date: 20190226
  Receipt Date: 20190226
  Transmission Date: 20190418
  Serious: No
  Sender: FDA-Public Use
  Company Number: US-IGSA-SR10007578

PATIENT
  Age: 67 Year
  Sex: Female
  Weight: 86 kg

DRUGS (11)
  1. PROLASTIN-C LIQUID [Suspect]
     Active Substance: .ALPHA.1-PROTEINASE INHIBITOR HUMAN
     Dosage: UNK
     Dates: start: 20180911
  2. PROPAFENONE HCL [Concomitant]
     Active Substance: PROPAFENONE HYDROCHLORIDE
  3. RESTASIS [Concomitant]
     Active Substance: CYCLOSPORINE
  4. VENTOLIN HFA [Concomitant]
     Active Substance: ALBUTEROL SULFATE
  5. DOXYCYCLINE HYCLATE. [Concomitant]
     Active Substance: DOXYCYCLINE HYCLATE
  6. PREDNISONE. [Concomitant]
     Active Substance: PREDNISONE
  7. PROLASTIN-C LIQUID [Suspect]
     Active Substance: .ALPHA.1-PROTEINASE INHIBITOR HUMAN
     Indication: ALPHA-1 ANTI-TRYPSIN DEFICIENCY
     Dosage: 5160 MG, Q.WK.
     Route: 042
     Dates: start: 20181207
  8. SYNTHROID [Concomitant]
     Active Substance: LEVOTHYROXINE SODIUM
  9. METOPROLOL TARTRATE. [Concomitant]
     Active Substance: METOPROLOL TARTRATE
  10. BUPROPION HCL ER [Concomitant]
     Active Substance: BUPROPION HYDROCHLORIDE
  11. CELECOXIB. [Concomitant]
     Active Substance: CELECOXIB

REACTIONS (3)
  - Chest discomfort [Not Recovered/Not Resolved]
  - Tremor [Not Recovered/Not Resolved]
  - Headache [Not Recovered/Not Resolved]

NARRATIVE: CASE EVENT DATE: 20181207
